FAERS Safety Report 6312793-7 (Version None)
Quarter: 2009Q3

REPORT INFORMATION
  Report Type: 
  Country: None (occurrence: None)
  Receive Date: 20090818
  Receipt Date: 20090812
  Transmission Date: 20100115
  Serious: Yes (Hospitalization)
  Sender: FDA-Public Use
  Company Number: AU-BAYER-200922121GPV

PATIENT

DRUGS (1)
  1. BETAFERON [Suspect]
     Indication: MULTIPLE SCLEROSIS
     Dates: start: 20081007

REACTIONS (4)
  - INTERVERTEBRAL DISC PROTRUSION [None]
  - LUMBAR RADICULOPATHY [None]
  - NERVE ROOT COMPRESSION [None]
  - SPINAL OPERATION [None]
